FAERS Safety Report 9175450 (Version 1)
Quarter: 2013Q1

REPORT INFORMATION
  Report Type: Report from Study
  Country: CO (occurrence: CO)
  Receive Date: 20130320
  Receipt Date: 20130320
  Transmission Date: 20140127
  Serious: Yes (Life-Threatening, Hospitalization)
  Sender: FDA-Public Use
  Company Number: CO-JNJFOC-20110808465

PATIENT
  Age: 64 Year
  Sex: Male
  Weight: 71 kg

DRUGS (11)
  1. GOLIMUMAB [Suspect]
     Indication: RHEUMATOID ARTHRITIS
     Dates: start: 20101228
  2. GOLIMUMAB [Suspect]
     Indication: RHEUMATOID ARTHRITIS
     Dates: start: 20110225, end: 20110425
  3. FOLIC ACID [Concomitant]
     Indication: RHEUMATOID ARTHRITIS
     Route: 048
     Dates: start: 20090917
  4. CELECOXIB [Concomitant]
     Indication: RHEUMATOID ARTHRITIS
     Route: 048
     Dates: start: 20090917
  5. METOPROLOL [Concomitant]
     Indication: HYPERTENSION
     Route: 048
  6. CAPTOPRIL [Concomitant]
     Indication: HYPERTENSION
     Route: 048
  7. GEMFIBROZIL [Concomitant]
     Indication: DYSLIPIDAEMIA
     Route: 048
  8. ASPIRIN [Concomitant]
     Indication: CORONARY ARTERY DISEASE
     Route: 048
  9. HCTZ [Concomitant]
  10. PREDNISONE [Concomitant]
  11. LOSARTAN [Concomitant]

REACTIONS (2)
  - Angina unstable [Recovered/Resolved]
  - Arterial rupture [Recovered/Resolved]
